FAERS Safety Report 5190080-0 (Version None)
Quarter: 2006Q4

REPORT INFORMATION
  Report Type: 
  Country: None (occurrence: None)
  Receive Date: 20061222
  Receipt Date: 20060217
  Transmission Date: 20070319
  Serious: No
  Sender: FDA-Public Use
  Company Number: BR-AVENTIS-200611870GDDC

PATIENT
  Age: 36 Year
  Sex: Female

DRUGS (6)
  1. ARAVA [Suspect]
     Indication: RHEUMATOID ARTHRITIS
     Route: 048
     Dates: start: 20041201, end: 20060208
  2. VIT D [Suspect]
     Indication: OSTEOPOROSIS PROPHYLAXIS
     Route: 048
  3. CALCIUM CARBONATE [Suspect]
     Indication: OSTEOPOROSIS PROPHYLAXIS
     Route: 048
  4. MELOXICAM [Suspect]
     Indication: RHEUMATOID ARTHRITIS
     Route: 048
  5. OMEPRAZOLE [Suspect]
     Indication: GASTRIC DISORDER
     Route: 048
  6. OMEPRAZOLE [Suspect]
     Indication: PROPHYLAXIS
     Route: 048

REACTIONS (3)
  - AMENORRHOEA [None]
  - DRUG EXPOSURE DURING PREGNANCY [None]
  - HAEMORRHAGE [None]
